FAERS Safety Report 8269117-8 (Version None)
Quarter: 2012Q1

REPORT INFORMATION
  Report Type: 
  Country: None (occurrence: None)
  Receive Date: 20120327
  Receipt Date: 20090921
  Transmission Date: 20120608
  Serious: Yes (Other)
  Sender: FDA-Public Use
  Company Number: PHEH2009US05927

PATIENT

DRUGS (6)
  1. OXYCODONE AND ACETAMINOPHEN [Concomitant]
  2. FLEXERIL [Concomitant]
  3. HYDREA [Concomitant]
  4. GLEEVEC [Suspect]
     Indication: CHRONIC MYELOID LEUKAEMIA
     Dosage: 400 MG IN AM, 200 MG IN PM, ORAL 400 MG, BID
     Route: 048
     Dates: start: 20090501
  5. GLEEVEC [Suspect]
     Indication: CHRONIC MYELOID LEUKAEMIA
     Dosage: 400 MG IN AM, 200 MG IN PM, ORAL 400 MG, BID
     Route: 048
     Dates: start: 20080501, end: 20090915
  6. VALIUM [Concomitant]

REACTIONS (8)
  - OEDEMA PERIPHERAL [None]
  - INFLUENZA LIKE ILLNESS [None]
  - PRURITUS [None]
  - RASH [None]
  - ABDOMINAL PAIN [None]
  - PERIORBITAL OEDEMA [None]
  - DIARRHOEA [None]
  - DYSPNOEA [None]
